FAERS Safety Report 8200782-7 (Version None)
Quarter: 2012Q1

REPORT INFORMATION
  Report Type: 
  Country: None (occurrence: None)
  Receive Date: 20120301
  Receipt Date: 20120223
  Transmission Date: 20120608
  Serious: Yes (Other)
  Sender: FDA-Public Use
  Company Number: 2012031061

PATIENT
  Age: 73 Year
  Sex: Female

DRUGS (8)
  1. PANTOPRAZOLE [Concomitant]
  2. MACROGOL(MACROGOL) [Concomitant]
  3. TORSEMIDE [Concomitant]
  4. ENTOCORD(BUDESONIDE) [Concomitant]
  5. PRIVIGEN [Suspect]
     Indication: CHRONIC LYMPHOCYTIC LEUKAEMIA
     Dosage: 10 G QD	INTRAVENOUS (NOT OTHERWISE SPECIFIED)
     Route: 042
     Dates: start: 20110627, end: 20110627
  6. CALCIUM CARBONATE [Concomitant]
  7. VOLTAREN [Concomitant]
  8. CLAVERSAL(MESALAZINE) [Concomitant]

REACTIONS (5)
  - ANGIOEDEMA [None]
  - INJECTION RELATED REACTION [None]
  - ERYTHEMA [None]
  - DIZZINESS [None]
  - RASH GENERALISED [None]
